FAERS Safety Report 20401920 (Version 2)
Quarter: 2022Q1

REPORT INFORMATION
  Report Type: Spontaneous
  Country: US (occurrence: US)
  Receive Date: 20220131
  Receipt Date: 20220201
  Transmission Date: 20220424
  Serious: No
  Sender: FDA-Public Use
  Company Number: US-ABBVIE-21K-163-4135005-00

PATIENT
  Sex: Female

DRUGS (7)
  1. HUMIRA [Suspect]
     Active Substance: ADALIMUMAB
     Indication: Crohn^s disease
     Route: 058
     Dates: start: 202009, end: 202109
  2. HUMIRA [Suspect]
     Active Substance: ADALIMUMAB
     Route: 058
     Dates: start: 202109
  3. PFIZER-BIONTECH COVID-19 VACCINE [Concomitant]
     Active Substance: TOZINAMERAN
     Indication: COVID-19 immunisation
     Route: 030
  4. OMEPRAZOLE [Concomitant]
     Active Substance: OMEPRAZOLE
     Indication: Dyspepsia
  5. OMEPRAZOLE [Concomitant]
     Active Substance: OMEPRAZOLE
     Indication: Gastrooesophageal reflux disease
  6. BALSALAZIDE [Concomitant]
     Active Substance: BALSALAZIDE
     Indication: Crohn^s disease
  7. LEVOTHYROXINE [Concomitant]
     Active Substance: LEVOTHYROXINE
     Indication: Hypothyroidism

REACTIONS (3)
  - Rash [Recovering/Resolving]
  - COVID-19 [Recovered/Resolved]
  - Cardiac valve disease [Not Recovered/Not Resolved]

NARRATIVE: CASE EVENT DATE: 20200101
